FAERS Safety Report 6451607-1 (Version None)
Quarter: 2009Q4

REPORT INFORMATION
  Report Type: 
  Country: None (occurrence: None)
  Receive Date: 20091120
  Receipt Date: 20091120
  Transmission Date: 20100525
  Serious: Yes (Death, Hospitalization)
  Sender: FDA-Public Use
  Company Number: None

PATIENT
  Age: 38 Year
  Sex: Female
  Weight: 111.5849 kg

DRUGS (23)
  1. OXYCODONE 5MG UNK [Suspect]
     Indication: ARTHRITIS
     Dosage: 5MG Q8H,PRN PO
     Route: 048
     Dates: start: 20091016, end: 20091031
  2. FLONASE [Concomitant]
  3. SEROQUEL [Concomitant]
  4. ATIVAN [Concomitant]
  5. VENTOLIN [Concomitant]
  6. ATROVENT [Concomitant]
  7. ADVAIR DISKUS 100/50 [Concomitant]
  8. LOVENOX [Concomitant]
  9. NOVOLIN [Concomitant]
  10. INSULIN [Concomitant]
  11. SOLU-MEDROL [Concomitant]
  12. LASIX [Concomitant]
  13. ROBITUSSIN [Concomitant]
  14. PEPCID [Concomitant]
  15. TAMIFLU [Concomitant]
  16. BACTRIM [Concomitant]
  17. MAXIPIME [Concomitant]
  18. ZITHROMAX [Concomitant]
  19. KALETRA [Concomitant]
  20. COMBIVIR [Concomitant]
  21. HYRDROCODONE [Concomitant]
  22. NORVASC [Concomitant]
  23. METFORMIN HCL [Concomitant]

REACTIONS (4)
  - ACUTE RESPIRATORY FAILURE [None]
  - GENERAL PHYSICAL HEALTH DETERIORATION [None]
  - H1N1 INFLUENZA [None]
  - SEPSIS [None]
